FAERS Safety Report 8711411 (Version 2)
Quarter: 2012Q4

REPORT INFORMATION
  Report Type: 
  Country: US (occurrence: US)
  Receive Date: 20120807
  Receipt Date: 20120830
  Transmission Date: 20130627
  Serious: Yes (Hospitalization)
  Sender: FDA-Public Use
  Company Number: US-PERRIGO-12US006499

PATIENT
  Age: 6 Year
  Sex: Male
  Weight: 24.94 kg

DRUGS (1)
  1. IBUPROFEN 20 MG/ML CHILD GRAPE 660 [Suspect]
     Indication: PYREXIA
     Dosage: 1.5 tsp, bid
     Route: 048
     Dates: start: 20120714, end: 20120714

REACTIONS (4)
  - Hypersensitivity [Recovered/Resolved]
  - Dyspnoea [Recovered/Resolved]
  - Cough [Recovered/Resolved]
  - Underdose [Recovered/Resolved]
